FAERS Safety Report 17818131 (Version 1)
Quarter: 2020Q2

REPORT INFORMATION
  Report Type: Report from Study
  Country: NL (occurrence: NL)
  Receive Date: 20200522
  Receipt Date: 20200522
  Transmission Date: 20200714
  Serious: Yes (Other)
  Sender: FDA-Public Use
  Company Number: PHHY2019NL054474

PATIENT
  Age: 21 Month
  Sex: Female
  Weight: 9.4 kg

DRUGS (8)
  1. TRAMETINIB [Suspect]
     Active Substance: TRAMETINIB
     Dosage: 0.03 MG/KG = 0.25 MG
     Route: 048
     Dates: start: 20190226, end: 20190716
  2. TRAMETINIB [Suspect]
     Active Substance: TRAMETINIB
     Dosage: 50% DOSE
     Route: 048
     Dates: start: 20191115
  3. TRAMETINIB [Suspect]
     Active Substance: TRAMETINIB
     Dosage: 2.5 ML, QD
     Route: 048
     Dates: start: 20190730
  4. TRAMETINIB [Suspect]
     Active Substance: TRAMETINIB
     Dosage: 0.025 MG/KG, QD
     Route: 048
     Dates: start: 20190905, end: 20191024
  5. TRAMETINIB [Suspect]
     Active Substance: TRAMETINIB
     Dosage: 0.025 MG/KG, QD
     Route: 048
     Dates: start: 20191118
  6. TRAMETINIB [Suspect]
     Active Substance: TRAMETINIB
     Dosage: 50% DOSE
     Route: 048
     Dates: start: 20191111
  7. TRAMETINIB [Suspect]
     Active Substance: TRAMETINIB
     Indication: GLIOMA
     Dosage: 0.02 MG/KG = 0.15 MG
     Route: 048
     Dates: start: 20190124
  8. TRAMETINIB [Suspect]
     Active Substance: TRAMETINIB
     Dosage: 0.025 MG/KG = 0.2 MG
     Route: 048
     Dates: start: 20190207

REACTIONS (19)
  - Neoplasm [Unknown]
  - Skin weeping [Unknown]
  - Viral infection [Unknown]
  - Skin disorder [Unknown]
  - Scab [Unknown]
  - Rash [Unknown]
  - Skin toxicity [Unknown]
  - Rash maculo-papular [Not Recovered/Not Resolved]
  - Infection [Unknown]
  - Dry skin [Unknown]
  - Genital candidiasis [Unknown]
  - Skin abrasion [Unknown]
  - Paronychia [Unknown]
  - Pain [Recovered/Resolved]
  - Pruritus [Unknown]
  - Candida infection [Unknown]
  - Speech disorder developmental [Recovering/Resolving]
  - Hypophagia [Recovering/Resolving]
  - Upper respiratory tract infection [Unknown]

NARRATIVE: CASE EVENT DATE: 20190614
